FAERS Safety Report 5953531-7 (Version None)
Quarter: 2008Q4

REPORT INFORMATION
  Report Type: 
  Country: None (occurrence: None)
  Receive Date: 20081114
  Receipt Date: 20081110
  Transmission Date: 20090506
  Serious: Yes (Hospitalization)
  Sender: FDA-Public Use
  Company Number: US-BRISTOL-MYERS SQUIBB COMPANY-14400592

PATIENT
  Age: 58 Year
  Sex: Female
  Weight: 71 kg

DRUGS (3)
  1. CETUXIMAB [Suspect]
     Indication: EPIGLOTTIC CARCINOMA
     Dates: start: 20080826
  2. CISPLATIN [Suspect]
     Indication: EPIGLOTTIC CARCINOMA
     Route: 042
     Dates: start: 20081027
  3. RADIATION THERAPY [Suspect]
     Indication: EPIGLOTTIC CARCINOMA

REACTIONS (3)
  - ANAEMIA [None]
  - PNEUMONIA [None]
  - PYREXIA [None]
